FAERS Safety Report 20334769 (Version 3)
Quarter: 2023Q1

REPORT INFORMATION
  Report Type: Report from Study
  Country: JP (occurrence: JP)
  Receive Date: 20220114
  Receipt Date: 20230223
  Transmission Date: 20230418
  Serious: Yes (Death, Life-Threatening, Hospitalization, Disabling, Other)
  Sender: FDA-Public Use
  Company Number: JP-ASTELLAS-2022JP000536

PATIENT
  Age: 77 Year
  Sex: Female
  Weight: 49 kg

DRUGS (19)
  1. ENFORTUMAB VEDOTIN [Suspect]
     Active Substance: ENFORTUMAB VEDOTIN
     Indication: Transitional cell carcinoma
     Route: 041
     Dates: start: 20211214, end: 20211221
  2. ENFORTUMAB VEDOTIN [Suspect]
     Active Substance: ENFORTUMAB VEDOTIN
     Dosage: 1.0 MG/KG, UNKNOWN FREQ.
     Route: 041
     Dates: start: 20211228, end: 20220125
  3. KEYTRUDA [Suspect]
     Active Substance: PEMBROLIZUMAB
     Indication: Transitional cell carcinoma
     Dosage: UNK UNK, UNKNOWN FREQ.
     Route: 065
     Dates: start: 20190925, end: 20211026
  4. RUPAFIN [Concomitant]
     Active Substance: RUPATADINE FUMARATE
     Indication: Pruritus
     Route: 048
     Dates: start: 20211227, end: 20220209
  5. CLOBETASOL [Concomitant]
     Active Substance: CLOBETASOL
     Indication: Pruritus
     Dosage: ADEQUATE DOSE, ONCE DAILY
     Route: 061
     Dates: start: 20211227, end: 20220111
  6. BETAMETHASONE DIPROPIONATE [Concomitant]
     Active Substance: BETAMETHASONE DIPROPIONATE
     Indication: Pruritus
     Dosage: ADEQUATE DOSE, ONCE DAILY
     Route: 061
     Dates: start: 20220112, end: 20220209
  7. SOLU-MEDROL [Concomitant]
     Active Substance: METHYLPREDNISOLONE SODIUM SUCCINATE
     Indication: Pulmonary toxicity
     Route: 065
     Dates: start: 20220210, end: 20220212
  8. SULFAMETHOXAZOLE\TRIMETHOPRIM [Concomitant]
     Active Substance: SULFAMETHOXAZOLE\TRIMETHOPRIM
     Indication: Infection prophylaxis
     Route: 048
     Dates: start: 20220210, end: 20220815
  9. CEFTRIAXONE SODIUM [Concomitant]
     Active Substance: CEFTRIAXONE SODIUM
     Indication: Infection prophylaxis
     Route: 065
     Dates: start: 20220210, end: 20220221
  10. PREDONINE [Concomitant]
     Active Substance: PREDNISOLONE
     Indication: Pulmonary toxicity
     Route: 065
     Dates: start: 20220213, end: 20220221
  11. PREDONINE [Concomitant]
     Active Substance: PREDNISOLONE
     Route: 065
     Dates: start: 20220222, end: 20220228
  12. PREDONINE [Concomitant]
     Active Substance: PREDNISOLONE
     Route: 065
     Dates: start: 20220301, end: 20220307
  13. PREDONINE [Concomitant]
     Active Substance: PREDNISOLONE
     Indication: Pulmonary toxicity
     Route: 048
     Dates: start: 20220308, end: 20220314
  14. PREDONINE [Concomitant]
     Active Substance: PREDNISOLONE
     Route: 048
     Dates: start: 20220315, end: 20220328
  15. PREDONINE [Concomitant]
     Active Substance: PREDNISOLONE
     Route: 048
     Dates: start: 20220329, end: 20220425
  16. PREDONINE [Concomitant]
     Active Substance: PREDNISOLONE
     Route: 048
     Dates: start: 20220426, end: 20220523
  17. PREDONINE [Concomitant]
     Active Substance: PREDNISOLONE
     Route: 048
     Dates: start: 20220524, end: 20220620
  18. PREDONINE [Concomitant]
     Active Substance: PREDNISOLONE
     Route: 048
     Dates: start: 20220621, end: 20220718
  19. PREDONINE [Concomitant]
     Active Substance: PREDNISOLONE
     Route: 048
     Dates: start: 20220719, end: 20220815

REACTIONS (5)
  - Pulmonary toxicity [Recovered/Resolved with Sequelae]
  - Myelosuppression [Unknown]
  - Interstitial lung disease [Recovered/Resolved]
  - Pruritus [Recovered/Resolved]
  - Transitional cell carcinoma [Fatal]

NARRATIVE: CASE EVENT DATE: 20211227
